FAERS Safety Report 5598594-6 (Version None)
Quarter: 2008Q1

REPORT INFORMATION
  Report Type: 
  Country: None (occurrence: None)
  Receive Date: 20080122
  Receipt Date: 20080110
  Transmission Date: 20080703
  Serious: Yes (Hospitalization)
  Sender: FDA-Public Use
  Company Number: CH-ASTRAZENECA-2008PK00102

PATIENT
  Age: 44 Year
  Sex: Female

DRUGS (4)
  1. SEROQUEL [Suspect]
     Route: 048
     Dates: start: 20070814, end: 20070823
  2. SEROQUEL [Suspect]
     Route: 048
     Dates: start: 20070824, end: 20070825
  3. SEROQUEL [Suspect]
     Route: 048
     Dates: start: 20070826, end: 20070827
  4. SEROQUEL [Suspect]
     Route: 048
     Dates: start: 20070828, end: 20070828

REACTIONS (1)
  - DEPRESSED LEVEL OF CONSCIOUSNESS [None]
